FAERS Safety Report 8901569 (Version 1)
Quarter: 2012Q4

REPORT INFORMATION
  Report Type: Spontaneous
  Country: US (occurrence: None)
  Receive Date: 20121108
  Receipt Date: 20121108
  Transmission Date: 20130627
  Serious: No
  Sender: FDA-Public Use
  Company Number: None

PATIENT
  Age: 40 Year
  Sex: Female

DRUGS (1)
  1. ORTHO NOVUM 1/35 [Suspect]
     Indication: IRREGULAR MENSTRUAL CYCLE
     Dosage: years ago
     Route: 048

REACTIONS (1)
  - Migraine [None]
